FAERS Safety Report 13370115 (Version 1)
Quarter: 2017Q1

REPORT INFORMATION
  Report Type: Spontaneous
  Country: US (occurrence: US)
  Receive Date: 20170324
  Receipt Date: 20170324
  Transmission Date: 20170429
  Serious: No
  Sender: FDA-Public Use
  Company Number: US-ROCHE-1236280

PATIENT
  Age: 59 Year
  Sex: Female

DRUGS (1)
  1. XOLAIR [Suspect]
     Active Substance: OMALIZUMAB
     Indication: ASTHMA
     Route: 058
     Dates: start: 20121025

REACTIONS (12)
  - Wheezing [Not Recovered/Not Resolved]
  - Blood immunoglobulin E abnormal [Unknown]
  - Throat tightness [Not Recovered/Not Resolved]
  - Glossodynia [Not Recovered/Not Resolved]
  - Somnolence [Not Recovered/Not Resolved]
  - Heart rate increased [Unknown]
  - Dyspepsia [Not Recovered/Not Resolved]
  - Asthenia [Not Recovered/Not Resolved]
  - Tongue coated [Not Recovered/Not Resolved]
  - Swollen tongue [Not Recovered/Not Resolved]
  - Lip swelling [Not Recovered/Not Resolved]
  - Dyspnoea [Not Recovered/Not Resolved]

NARRATIVE: CASE EVENT DATE: 201302
